FAERS Safety Report 6262219-7 (Version None)
Quarter: 2009Q3

REPORT INFORMATION
  Report Type: 
  Country: None (occurrence: None)
  Receive Date: 20090708
  Receipt Date: 20090708
  Transmission Date: 20100115
  Serious: No
  Sender: FDA-Public Use
  Company Number: None

PATIENT
  Sex: Female
  Weight: 112.9457 kg

DRUGS (1)
  1. TOPIRAMATE [Suspect]
     Indication: EPILEPSY
     Dosage: 350 MG Q H.S. P.O.
     Route: 048
     Dates: start: 20090623

REACTIONS (3)
  - ABDOMINAL DISCOMFORT [None]
  - DIARRHOEA [None]
  - PRODUCT SUBSTITUTION ISSUE [None]
